FAERS Safety Report 6833015-4 (Version None)
Quarter: 2010Q3

REPORT INFORMATION
  Report Type: 
  Country: None (occurrence: None)
  Receive Date: 20100712
  Receipt Date: 20100601
  Transmission Date: 20110219
  Serious: No
  Sender: FDA-Public Use
  Company Number: US-BIOGENIDEC-2010BI018650

PATIENT
  Age: 56 Year
  Sex: Female

DRUGS (2)
  1. AVONEX [Suspect]
     Indication: MULTIPLE SCLEROSIS
     Route: 030
     Dates: start: 19990101, end: 20041201
  2. AVONEX [Suspect]
     Route: 030
     Dates: start: 20050501

REACTIONS (3)
  - DYSPNOEA [None]
  - OXYGEN SATURATION DECREASED [None]
  - URTICARIA [None]
